FAERS Safety Report 19748809 (Version 1)
Quarter: 2021Q3

REPORT INFORMATION
  Report Type: Report from Study
  Country: CN (occurrence: CN)
  Receive Date: 20210826
  Receipt Date: 20210826
  Transmission Date: 20211014
  Serious: Yes (Hospitalization)
  Sender: FDA-Public Use
  Company Number: CN-ROCHE-2894336

PATIENT
  Age: 57 Year
  Sex: Female
  Weight: 49 kg

DRUGS (3)
  1. CISPLATIN. [Suspect]
     Active Substance: CISPLATIN
     Indication: SMALL CELL LUNG CANCER
     Dosage: MOST RECENT DOSE ON 10/APR/2021 40 MG AND 35 MG
     Route: 042
     Dates: start: 20210201
  2. ETOPOSIDE. [Suspect]
     Active Substance: ETOPOSIDE
     Indication: SMALL CELL LUNG CANCER
     Dosage: MOST RECENT DOSE ON 10/APR/2021 135 MG AND 140 MG
     Route: 042
     Dates: start: 20210201
  3. ATEZOLIZUMAB. [Suspect]
     Active Substance: ATEZOLIZUMAB
     Indication: SMALL CELL LUNG CANCER
     Dosage: 21/JUL/2021,MOST RECENT DOSE OF ATEZOLIZUMAB.
     Route: 041
     Dates: start: 20210201

REACTIONS (1)
  - Dyspepsia [Not Recovered/Not Resolved]

NARRATIVE: CASE EVENT DATE: 20210810
